FAERS Safety Report 25347535 (Version 1)
Quarter: 2025Q2

REPORT INFORMATION
  Report Type: Spontaneous
  Country: US (occurrence: US)
  Receive Date: 20250522
  Receipt Date: 20250522
  Transmission Date: 20250717
  Serious: No
  Sender: AMGEN
  Company Number: US-AMGEN-USASP2025099823

PATIENT
  Age: 76 Year
  Sex: Female

DRUGS (2)
  1. AIMOVIG [Suspect]
     Active Substance: ERENUMAB-AOOE
     Indication: Migraine
     Route: 058
  2. AIMOVIG [Suspect]
     Active Substance: ERENUMAB-AOOE
     Route: 058
     Dates: start: 2025

REACTIONS (6)
  - Device difficult to use [Unknown]
  - Device use error [Unknown]
  - Accidental exposure to product [Unknown]
  - Occupational exposure to product [Unknown]
  - Drug dose omission by device [Unknown]
  - Brain fog [Unknown]

NARRATIVE: CASE EVENT DATE: 20250519
